FAERS Safety Report 7688694-9 (Version None)
Quarter: 2011Q3

REPORT INFORMATION
  Report Type: 
  Country: None (occurrence: None)
  Receive Date: 20110817
  Receipt Date: 20110815
  Transmission Date: 20111222
  Serious: Yes (Death, Hospitalization)
  Sender: FDA-Public Use
  Company Number: US-GLAXOSMITHKLINE-A0940602A

PATIENT
  Age: 95 Year
  Sex: Male

DRUGS (1)
  1. AVANDIA [Suspect]
     Indication: DIABETES MELLITUS
     Route: 048

REACTIONS (5)
  - RESPIRATORY ARREST [None]
  - TRANSIENT ISCHAEMIC ATTACK [None]
  - PAIN [None]
  - BLOOD GLUCOSE DECREASED [None]
  - ACUTE MYOCARDIAL INFARCTION [None]
